FAERS Safety Report 7485836-5 (Version None)
Quarter: 2011Q2

REPORT INFORMATION
  Report Type: 
  Country: None (occurrence: None)
  Receive Date: 20110517
  Receipt Date: 20110511
  Transmission Date: 20111010
  Serious: Yes (Hospitalization)
  Sender: FDA-Public Use
  Company Number: FR-PFIZER INC-2011099416

PATIENT
  Age: 38 Year
  Sex: Male

DRUGS (4)
  1. SIROLIMUS [Suspect]
     Indication: IMMUNOSUPPRESSANT DRUG THERAPY
     Dosage: 6 MG, 1X/DAY
     Route: 048
     Dates: start: 20071012, end: 20080918
  2. VALACYCLOVIR [Suspect]
     Dosage: 1800 MG, 1X/DAY
     Route: 048
  3. CELLCEPT [Suspect]
     Dosage: 1 G, 1X/DAY
     Route: 048
     Dates: start: 20070808, end: 20080919
  4. TACROLIMUS [Concomitant]
     Dosage: UNK
     Dates: start: 20080918

REACTIONS (5)
  - APLASIA PURE RED CELL [None]
  - ANAEMIA [None]
  - NEUTROPENIA [None]
  - ANAL FISSURE [None]
  - THROMBOCYTOPENIA [None]
